FAERS Safety Report 24385909 (Version 2)
Quarter: 2024Q4

REPORT INFORMATION
  Report Type: Spontaneous
  Country: US (occurrence: US)
  Receive Date: 20241001
  Receipt Date: 20241011
  Transmission Date: 20250115
  Serious: Yes (Other)
  Sender: ELI LILLY AND CO
  Company Number: US-ELI_LILLY_AND_COMPANY-US202409016404

PATIENT
  Age: 49 Year
  Sex: Female

DRUGS (4)
  1. INSULIN LISPRO [Suspect]
     Active Substance: INSULIN LISPRO
     Indication: Type 2 diabetes mellitus
     Dosage: UNK UNK, UNKNOWN
     Route: 065
  2. HUMALOG [Suspect]
     Active Substance: INSULIN LISPRO
     Indication: Type 2 diabetes mellitus
     Dosage: UNK UNK, UNKNOWN
     Route: 065
  3. GLIPIZIDE [Concomitant]
     Active Substance: GLIPIZIDE
     Indication: Type 2 diabetes mellitus
  4. JARDIANCE [Concomitant]
     Active Substance: EMPAGLIFLOZIN
     Indication: Type 2 diabetes mellitus

REACTIONS (10)
  - Endometrial cancer [Recovered/Resolved]
  - Cervix carcinoma [Recovered/Resolved]
  - Colon cancer [Recovered/Resolved]
  - Metastases to pelvis [Recovered/Resolved]
  - Cardiac disorder [Recovering/Resolving]
  - Uterine enlargement [Recovered/Resolved]
  - Abdominal mass [Recovered/Resolved]
  - Neuropathy peripheral [Unknown]
  - Balance disorder [Unknown]
  - Pain [Unknown]
